FAERS Safety Report 23161485 (Version 1)
Quarter: 2023Q4

REPORT INFORMATION
  Report Type: Spontaneous
  Country: FR (occurrence: FR)
  Receive Date: 20231108
  Receipt Date: 20231108
  Transmission Date: 20240110
  Serious: Yes (Other)
  Sender: FDA-Public Use
  Company Number: None

PATIENT
  Age: 16 Year
  Sex: Female

DRUGS (1)
  1. ACETAMINOPHEN [Suspect]
     Active Substance: ACETAMINOPHEN
     Indication: Product used for unknown indication
     Dosage: 8.000 G
     Route: 065
     Dates: start: 20230613

REACTIONS (4)
  - Vertigo [Unknown]
  - Poisoning deliberate [Recovered/Resolved]
  - Abdominal pain upper [Unknown]
  - Muscular weakness [Unknown]

NARRATIVE: CASE EVENT DATE: 20230613
